FAERS Safety Report 7234412-8 (Version None)
Quarter: 2011Q1

REPORT INFORMATION
  Report Type: 
  Country: None (occurrence: None)
  Receive Date: 20110119
  Receipt Date: 20110113
  Transmission Date: 20110831
  Serious: Yes (Other)
  Sender: FDA-Public Use
  Company Number: US-PFIZER INC-2011009306

PATIENT
  Sex: Female
  Weight: 77 kg

DRUGS (1)
  1. XALATAN [Suspect]
     Indication: OPEN ANGLE GLAUCOMA
     Dosage: 1 GTT IN EACH EYE, 1X/DAY
     Route: 047
     Dates: start: 20070101

REACTIONS (5)
  - INTERVERTEBRAL DISC DISPLACEMENT [None]
  - VISION BLURRED [None]
  - EXCESSIVE EYE BLINKING [None]
  - MUSCLE TIGHTNESS [None]
  - DYSPNOEA [None]
